FAERS Safety Report 7618831-3 (Version None)
Quarter: 2011Q3

REPORT INFORMATION
  Report Type: 
  Country: None (occurrence: None)
  Receive Date: 20110718
  Receipt Date: 20110712
  Transmission Date: 20111222
  Serious: Yes (Congenital Anomaly, Other)
  Sender: FDA-Public Use
  Company Number: US-PFIZER INC-2009295834

PATIENT
  Sex: Female
  Weight: 3.7 kg

DRUGS (1)
  1. EFFEXOR XR [Suspect]
     Indication: DEPRESSION
     Dosage: 75 MG, 1X/DAY
     Route: 064
     Dates: start: 20070101

REACTIONS (5)
  - ATRIAL SEPTAL DEFECT [None]
  - PATENT DUCTUS ARTERIOSUS [None]
  - LARGE FOR DATES BABY [None]
  - VENTRICULAR SEPTAL DEFECT [None]
  - MATERNAL EXPOSURE DURING PREGNANCY [None]
